FAERS Safety Report 13801510 (Version 1)
Quarter: 2017Q3

REPORT INFORMATION
  Report Type: Spontaneous
  Country: MX (occurrence: MX)
  Receive Date: 20170727
  Receipt Date: 20170727
  Transmission Date: 20171127
  Serious: Yes (Other)
  Sender: FDA-Public Use
  Company Number: MX-BAYER-2017-138939

PATIENT
  Sex: Female

DRUGS (1)
  1. CIPROXINA 250 MG (CIPROFLOXACIN HYDROCHLORIDE) [Suspect]
     Active Substance: CIPROFLOXACIN HYDROCHLORIDE
     Indication: CERVICITIS
     Dosage: UNK
     Dates: start: 20170615

REACTIONS (13)
  - Tongue dry [Recovered/Resolved]
  - Pain in extremity [Recovered/Resolved]
  - Tongue paralysis [Unknown]
  - Dry mouth [Recovered/Resolved]
  - Pain [Recovered/Resolved]
  - Dyskinesia [Recovered/Resolved]
  - Burning sensation [Recovered/Resolved]
  - Palpitations [Recovered/Resolved]
  - Asthenopia [Not Recovered/Not Resolved]
  - Feeling hot [Recovered/Resolved]
  - Anxiety [Recovered/Resolved]
  - Swollen tongue [Unknown]
  - Paraesthesia [Recovered/Resolved]

NARRATIVE: CASE EVENT DATE: 20170630
